FAERS Safety Report 18147057 (Version 1)
Quarter: 2020Q3

REPORT INFORMATION
  Report Type: Spontaneous
  Country: US (occurrence: US)
  Receive Date: 20200813
  Receipt Date: 20200813
  Transmission Date: 20201103
  Serious: No
  Sender: FDA-Public Use
  Company Number: US-MAYNE PHARMA-2019MYN000838

PATIENT

DRUGS (2)
  1. CLONIDINE. [Suspect]
     Active Substance: CLONIDINE
     Indication: ANXIETY
     Dosage: 0.1 MG, QWEEK
     Route: 062
     Dates: start: 20190918, end: 20191004
  2. CLONIDINE. [Suspect]
     Active Substance: CLONIDINE
     Indication: ANXIETY
     Route: 062

REACTIONS (8)
  - Dry skin [Not Recovered/Not Resolved]
  - Skin lesion [Not Recovered/Not Resolved]
  - Application site scar [Not Recovered/Not Resolved]
  - Application site burn [Not Recovered/Not Resolved]
  - Application site erythema [Not Recovered/Not Resolved]
  - Rash papular [Not Recovered/Not Resolved]
  - Product use in unapproved indication [Unknown]
  - Product substitution issue [Unknown]
